FAERS Safety Report 16140227 (Version 1)
Quarter: 2019Q1

REPORT INFORMATION
  Report Type: Report from Study
  Country: GB (occurrence: GB)
  Receive Date: 20190331
  Receipt Date: 20190331
  Transmission Date: 20190418
  Serious: Yes (Other)
  Sender: FDA-Public Use
  Company Number: GB-UCBSA-2019009589

PATIENT
  Age: 69 Year
  Sex: Male

DRUGS (2)
  1. CERTOLIZUMAB PEGOL ASP AUTOCLICKS [Suspect]
     Active Substance: CERTOLIZUMAB PEGOL
     Indication: ANKYLOSING SPONDYLITIS
     Dosage: 400 MG, EV 2 WEEKS(QOW)
     Route: 058
  2. CERTOLIZUMAB PEGOL ASP AUTOCLICKS [Suspect]
     Active Substance: CERTOLIZUMAB PEGOL
     Dosage: 200 MG, EV 2 WEEKS(QOW)
     Route: 058

REACTIONS (4)
  - Oral herpes [Unknown]
  - Asthma [Unknown]
  - Lower respiratory tract infection [Unknown]
  - Infection [Unknown]

NARRATIVE: CASE EVENT DATE: 201812
